FAERS Safety Report 5697385-5 (Version None)
Quarter: 2008Q2

REPORT INFORMATION
  Report Type: 
  Country: None (occurrence: None)
  Receive Date: 20080407
  Receipt Date: 20080331
  Transmission Date: 20081010
  Serious: Yes (Death, Disabling, Other)
  Sender: FDA-Public Use
  Company Number: PHFR2008GB01098

PATIENT
  Sex: Male

DRUGS (7)
  1. ZOMETA [Suspect]
     Indication: PROPHYLAXIS
     Dosage: UNK, UNK
     Dates: start: 20040701, end: 20051201
  2. ZOLADEX [Concomitant]
  3. DEXAMETHASONE [Concomitant]
  4. GABAPENTIN [Concomitant]
  5. CEFODIZIME DISODIUM [Concomitant]
  6. INFUMORPH [Concomitant]
  7. CO-DANTHRAMER [Concomitant]

REACTIONS (5)
  - BONE LESION [None]
  - OSTEONECROSIS [None]
  - PROSTATE CANCER METASTATIC [None]
  - SECRETION DISCHARGE [None]
  - TOOTH EXTRACTION [None]
